FAERS Safety Report 14854170 (Version 1)
Quarter: 2018Q2

REPORT INFORMATION
  Report Type: Spontaneous
  Country: US (occurrence: US)
  Receive Date: 20180507
  Receipt Date: 20180507
  Transmission Date: 20180711
  Serious: No
  Sender: FDA-Public Use
  Company Number: US-LEO PHARMA-308736

PATIENT
  Sex: Female

DRUGS (1)
  1. PICATO [Suspect]
     Active Substance: INGENOL MEBUTATE
     Indication: ACTINIC KERATOSIS
     Route: 061

REACTIONS (6)
  - Application site hypersensitivity [Unknown]
  - Application site erythema [Unknown]
  - Application site oedema [Unknown]
  - Application site pustules [Unknown]
  - Incorrect drug administration duration [Unknown]
  - Eye swelling [Unknown]
